FAERS Safety Report 19022028 (Version 2)
Quarter: 2021Q1

REPORT INFORMATION
  Report Type: Spontaneous
  Country: AR (occurrence: AR)
  Receive Date: 20210318
  Receipt Date: 20210323
  Transmission Date: 20210420
  Serious: No
  Sender: FDA-Public Use
  Company Number: AR-SA-2021SA059466

PATIENT
  Sex: Female

DRUGS (1)
  1. CLEXANE [Suspect]
     Active Substance: ENOXAPARIN SODIUM
     Indication: HYPERCOAGULATION
     Dosage: 60 UIU, QD
     Route: 058
     Dates: start: 202011, end: 202102

REACTIONS (2)
  - Exposure during pregnancy [Unknown]
  - Product availability issue [Unknown]
